FAERS Safety Report 9222489 (Version 1)
Quarter: 2013Q2

REPORT INFORMATION
  Report Type: Report from Study
  Country: GB (occurrence: GB)
  Receive Date: 20130410
  Receipt Date: 20130410
  Transmission Date: 20140414
  Serious: Yes (Other)
  Sender: FDA-Public Use
  Company Number: GB-AMGEN-GBRCT2013024618

PATIENT
  Age: 68 Year
  Sex: Male

DRUGS (2)
  1. ETANERCEPT [Suspect]
     Indication: RHEUMATOID ARTHRITIS
     Dosage: 25 MG, 2 TIMES/WK
     Dates: start: 20080519, end: 20080720
  2. LEFLUNOMIDE [Concomitant]
     Dosage: UNK
     Dates: start: 20100614

REACTIONS (1)
  - Lung neoplasm malignant [Unknown]
